FAERS Safety Report 7725154-0 (Version None)
Quarter: 2011Q3

REPORT INFORMATION
  Report Type: 
  Country: None (occurrence: None)
  Receive Date: 20110901
  Receipt Date: 20110825
  Transmission Date: 20111222
  Serious: Yes (Hospitalization)
  Sender: FDA-Public Use
  Company Number: US-MERCK-1108USA00714

PATIENT
  Age: 27 Year
  Sex: Female

DRUGS (3)
  1. SINGULAIR [Suspect]
     Indication: ASTHMA
     Route: 048
     Dates: start: 20080624, end: 20080101
  2. CLARITIN [Concomitant]
     Route: 065
  3. VITAMINS (UNSPECIFIED) [Concomitant]
     Route: 065

REACTIONS (5)
  - COMPLICATION OF DELIVERY [None]
  - PLACENTAL DISORDER [None]
  - ABDOMINAL PAIN [None]
  - MATERNAL EXPOSURE DURING PREGNANCY [None]
  - PREMATURE LABOUR [None]
